FAERS Safety Report 18914456 (Version 1)
Quarter: 2021Q1

REPORT INFORMATION
  Report Type: Report from Study
  Country: US (occurrence: US)
  Receive Date: 20210218
  Receipt Date: 20210218
  Transmission Date: 20210420
  Serious: Yes (Hospitalization, Other)
  Sender: FDA-Public Use
  Company Number: US-TRAVERE THERAPEUTICS, INC.-2020RTN00173

PATIENT
  Age: 3 Year
  Sex: Female
  Weight: 10.9 kg

DRUGS (1)
  1. CHOLIC ACID [Suspect]
     Active Substance: CHOLIC ACID
     Indication: INBORN ERROR IN PRIMARY BILE ACID SYNTHESIS
     Dosage: 100 MG, 1X/DAY
     Dates: start: 20171231

REACTIONS (6)
  - Alanine aminotransferase increased [Unknown]
  - Ear infection bacterial [Recovered/Resolved]
  - Aspartate aminotransferase increased [Unknown]
  - Haematochezia [Unknown]
  - Clostridium difficile infection [Unknown]
  - Steatorrhoea [Recovered/Resolved]

NARRATIVE: CASE EVENT DATE: 20201130
